FAERS Safety Report 9392755 (Version 1)
Quarter: 2013Q3

REPORT INFORMATION
  Report Type: Spontaneous
  Country: VN (occurrence: VN)
  Receive Date: 20130710
  Receipt Date: 20130710
  Transmission Date: 20140515
  Serious: Yes (Death, Hospitalization)
  Sender: FDA-Public Use
  Company Number: VN-BAYER-2013-080819

PATIENT
  Age: 66 Year
  Sex: Male

DRUGS (2)
  1. NEXAVAR [Suspect]
     Indication: RENAL CANCER RECURRENT
     Dosage: 400MG DAILY
     Route: 048
     Dates: start: 20130621, end: 20130623
  2. MORPHINE [Concomitant]
     Dosage: 5 MG, Q4HR

REACTIONS (8)
  - Hiccups [None]
  - Coma [None]
  - Gastrooesophageal reflux disease [None]
  - Circulatory collapse [None]
  - Oxygen saturation decreased [None]
  - Blood urea increased [None]
  - Blood creatinine increased [None]
  - Death [Fatal]
